FAERS Safety Report 24592125 (Version 2)
Quarter: 2024Q4

REPORT INFORMATION
  Report Type: Other
  Country: CA (occurrence: CA)
  Receive Date: 20241108
  Receipt Date: 20241121
  Transmission Date: 20250115
  Serious: Yes (Hospitalization)
  Sender: ALVOGEN
  Company Number: CA-ALVOGEN-2024095779

PATIENT
  Age: 57 Year
  Sex: Male

DRUGS (10)
  1. BUPRENORPHINE HYDROCHLORIDE AND NALOXONE HYDROCHLORIDE [Suspect]
     Active Substance: BUPRENORPHINE HYDROCHLORIDE\NALOXONE HYDROCHLORIDE
     Indication: Drug use disorder
     Dosage: BUPRENORPHINE AND NALOXONE STARTED THREE YEARS BEFORE HIS INITIAL PRESENTATION
  2. UNSPECIFIED INGREDIENT [Suspect]
     Active Substance: UNSPECIFIED INGREDIENT
     Indication: Back pain
     Dosage: FOR 6 YEARS BEFORE HIS INITIAL PRESENTATION TO CLINIC
  3. CITALOPRAM [Suspect]
     Active Substance: CITALOPRAM
     Indication: Obsessive-compulsive disorder
     Dosage: 40 MG/DAY
  4. QUETIAPINE [Suspect]
     Active Substance: QUETIAPINE
     Indication: Obsessive-compulsive disorder
     Dosage: 400 MG/DAY
  5. ARIPIPRAZOLE [Suspect]
     Active Substance: ARIPIPRAZOLE
     Indication: Obsessive-compulsive disorder
     Dosage: 10 MG/DAY
  6. DULOXETINE [Suspect]
     Active Substance: DULOXETINE
     Indication: Obsessive-compulsive disorder
     Dosage: 120 MG/DAY
  7. ZOPICLONE [Suspect]
     Active Substance: ZOPICLONE
     Indication: Obsessive-compulsive disorder
     Dosage: 7.5 MG/DAY
  8. MIRTAZAPINE [Suspect]
     Active Substance: MIRTAZAPINE
     Indication: Obsessive-compulsive disorder
     Dosage: 30 MG/DAY
  9. GABAPENTIN [Concomitant]
     Active Substance: GABAPENTIN
     Indication: Pain
     Dosage: 600MG/DAY
  10. TRAZODONE HYDROCHLORIDE [Concomitant]
     Active Substance: TRAZODONE HYDROCHLORIDE
     Indication: Sleep disorder

REACTIONS (5)
  - Cognitive disorder [Recovered/Resolved]
  - Dementia [Recovered/Resolved]
  - Loss of personal independence in daily activities [Recovered/Resolved]
  - Multiple drug therapy [Unknown]
  - Overdose [Unknown]

NARRATIVE: CASE EVENT DATE: 20190101
